FAERS Safety Report 4345162-X (Version None)
Quarter: 2004Q2

REPORT INFORMATION
  Report Type: 
  Country: None (occurrence: None)
  Receive Date: 20040420
  Receipt Date: 20040412
  Transmission Date: 20050107
  Serious: Yes (Hospitalization)
  Sender: FDA-Public Use
  Company Number: US-SHR-03-015974

PATIENT
  Age: 66 Year
  Sex: Female
  Weight: 96.1 kg

DRUGS (1)
  1. BETASERON [Suspect]
     Indication: MULTIPLE SCLEROSIS
     Dosage: 8 MIU, EVERY 2D, SUBCUTANEOUS
     Route: 058
     Dates: start: 20030818, end: 20030929

REACTIONS (2)
  - HAEMOGLOBIN DECREASED [None]
  - SYNCOPE [None]
